FAERS Safety Report 7860423-5 (Version None)
Quarter: 2011Q4

REPORT INFORMATION
  Report Type: 
  Country: None (occurrence: None)
  Receive Date: 20111027
  Receipt Date: 20111017
  Transmission Date: 20120403
  Serious: Yes (Death)
  Sender: FDA-Public Use
  Company Number: PHHY2011CA91319

PATIENT
  Sex: Male

DRUGS (7)
  1. RABEPRAZOLE SODIUM [Concomitant]
  2. SANDOSTATIN LAR [Suspect]
     Indication: SMALL INTESTINE CARCINOMA
     Dosage: 40 MG, EVERY FOUR WEEKS
     Route: 030
     Dates: start: 20081201
  3. METFORMIN HCL [Concomitant]
  4. AVAPRO [Concomitant]
  5. ATORVASTATIN CALCIUM [Concomitant]
  6. GLICLAZIDE [Concomitant]
  7. SANDOSTATIN LAR [Suspect]
     Dosage: 40 MG, EVERY FOUR WEEKS
     Route: 030
     Dates: start: 20110202

REACTIONS (1)
  - NEOPLASM MALIGNANT [None]
